FAERS Safety Report 17462528 (Version 2)
Quarter: 2020Q3

REPORT INFORMATION
  Report Type: Spontaneous
  Country: US (occurrence: US)
  Receive Date: 20200226
  Receipt Date: 20200821
  Transmission Date: 20201102
  Serious: No
  Sender: FDA-Public Use
  Company Number: US-EMD SERONO-E2B_90073118

PATIENT
  Age: 46 Year
  Sex: Female

DRUGS (6)
  1. LEVOTHYROXINE                      /00068002/ [Suspect]
     Active Substance: LEVOTHYROXINE
     Indication: PAPILLARY THYROID CANCER
     Dates: start: 2009
  2. OMEPRAZOLE. [Concomitant]
     Active Substance: OMEPRAZOLE
     Indication: PRODUCT USED FOR UNKNOWN INDICATION
  3. GABAPENTIN. [Concomitant]
     Active Substance: GABAPENTIN
     Indication: PRODUCT USED FOR UNKNOWN INDICATION
  4. REBIF [Suspect]
     Active Substance: INTERFERON BETA-1A
     Indication: PRODUCT USED FOR UNKNOWN INDICATION
     Route: 058
     Dates: start: 20160823
  5. BACLOFEN. [Concomitant]
     Active Substance: BACLOFEN
     Indication: PRODUCT USED FOR UNKNOWN INDICATION
  6. TRAZODONE [Concomitant]
     Active Substance: TRAZODONE HYDROCHLORIDE
     Indication: PRODUCT USED FOR UNKNOWN INDICATION

REACTIONS (9)
  - Injection site discolouration [Recovered/Resolved]
  - Injection site mass [Recovered/Resolved]
  - Injection site rash [Unknown]
  - Blood thyroid stimulating hormone decreased [Not Recovered/Not Resolved]
  - Laboratory test abnormal [Unknown]
  - Injection site nodule [Recovered/Resolved]
  - Injection site bruising [Unknown]
  - Injection site pain [Recovered/Resolved]
  - Thyroid hormones increased [Unknown]

NARRATIVE: CASE EVENT DATE: 2018
